FAERS Safety Report 15127902 (Version 1)
Quarter: 2018Q4

REPORT INFORMATION
  Report Type: Spontaneous
  Country: US (occurrence: US)
  Receive Date: 20180710
  Receipt Date: 20180710
  Transmission Date: 20190204
  Serious: No
  Sender: FDA-Public Use
  Company Number: US-LYNE LABORATORIES INC.-2051696

PATIENT
  Age: 75 Year
  Sex: Male

DRUGS (2)
  1. TRIAMCINOLONE ACETONIDE. [Suspect]
     Active Substance: TRIAMCINOLONE ACETONIDE
     Indication: MOUTH INJURY
     Route: 061
     Dates: start: 20171030
  2. VOLTAREN [Concomitant]
     Active Substance: DICLOFENAC SODIUM
     Route: 061

REACTIONS (2)
  - Gingival discolouration [None]
  - Skin discolouration [Unknown]

NARRATIVE: CASE EVENT DATE: 20171031
